FAERS Safety Report 9163286 (Version 2)
Quarter: 2013Q1

REPORT INFORMATION
  Report Type: Spontaneous
  Country: SG (occurrence: SG)
  Receive Date: 20130314
  Receipt Date: 20130319
  Transmission Date: 20140127
  Serious: Yes (Other)
  Sender: FDA-Public Use
  Company Number: SG-GLAXOSMITHKLINE-B0874109A

PATIENT
  Age: 33 Year
  Sex: Female

DRUGS (2)
  1. SALBUTAMOL [Suspect]
     Indication: PRODUCT USED FOR UNKNOWN INDICATION
     Route: 055
  2. IPRATROPIUM [Concomitant]
     Indication: PRODUCT USED FOR UNKNOWN INDICATION
     Route: 055

REACTIONS (5)
  - Agitation [Unknown]
  - Tachycardia [Unknown]
  - Dizziness [Unknown]
  - Lacrimation increased [Unknown]
  - Tremor [Unknown]
